FAERS Safety Report 9109714 (Version 1)
Quarter: 2013Q1

REPORT INFORMATION
  Report Type: Spontaneous
  Country: US (occurrence: US)
  Receive Date: 20130222
  Receipt Date: 20130222
  Transmission Date: 20140127
  Serious: No
  Sender: FDA-Public Use
  Company Number: US-PFIZER INC-2013066268

PATIENT
  Age: 65 Year
  Sex: Female
  Weight: 104.31 kg

DRUGS (2)
  1. GABAPENTIN [Suspect]
     Indication: NERVE INJURY
     Dosage: UNK
  2. OXYCODONE [Concomitant]
     Dosage: UNK

REACTIONS (2)
  - Neuropathy peripheral [Unknown]
  - Pain [Unknown]
